FAERS Safety Report 19021581 (Version 1)
Quarter: 2021Q1

REPORT INFORMATION
  Report Type: Spontaneous
  Country: AT (occurrence: AT)
  Receive Date: 20210317
  Receipt Date: 20210317
  Transmission Date: 20210420
  Serious: Yes (Other)
  Sender: FDA-Public Use
  Company Number: AT-ANIPHARMA-2021-AT-000003

PATIENT
  Age: 51 Year
  Sex: Female

DRUGS (2)
  1. CAELYX/CARBOPLATIN [Concomitant]
     Route: 065
     Dates: end: 201908
  2. ANASTROZOLE. [Suspect]
     Active Substance: ANASTROZOLE
     Indication: PRODUCT USED FOR UNKNOWN INDICATION
     Route: 048
     Dates: start: 2018, end: 201910

REACTIONS (4)
  - Thrombosis [Unknown]
  - General physical health deterioration [Unknown]
  - Disease recurrence [Unknown]
  - Cardiomyopathy [Unknown]
